FAERS Safety Report 23706257 (Version 1)
Quarter: 2024Q2

REPORT INFORMATION
  Report Type: Spontaneous
  Country: US (occurrence: US)
  Receive Date: 20240404
  Receipt Date: 20240404
  Transmission Date: 20240715
  Serious: No
  Sender: FDA-Public Use
  Company Number: US-THE RITEDOSE CORPORATION-2023RIT000124

PATIENT

DRUGS (1)
  1. ALBUTEROL SULFATE [Suspect]
     Active Substance: ALBUTEROL SULFATE
     Indication: Asthma
     Dosage: 0.083%, 2.5 MG/3 ML, BID
     Route: 055

REACTIONS (4)
  - Asthma [Unknown]
  - Liquid product physical issue [Unknown]
  - Product use issue [Unknown]
  - Product quality issue [Unknown]
